FAERS Safety Report 10244755 (Version 2)
Quarter: 2014Q2

REPORT INFORMATION
  Report Type: Spontaneous
  Country: JP (occurrence: JP)
  Receive Date: 20140618
  Receipt Date: 20140625
  Transmission Date: 20141212
  Serious: Yes (Other)
  Sender: FDA-Public Use
  Company Number: JP-BRISTOL-MYERS SQUIBB COMPANY-21041181

PATIENT
  Age: 1 Day
  Sex: Male
  Weight: 1.97 kg

DRUGS (4)
  1. ABILIFY DISCMELT TABS [Suspect]
     Dosage: 19APR14-ROA:TRANSMAMMARY
     Route: 064
     Dates: start: 20140225, end: 20140418
  2. AMOBAN [Concomitant]
     Dosage: 1DF=7.5 UNITS NOS
  3. NITRAZEPAM [Concomitant]
     Dosage: TABLET
  4. TRAZODONE HCL TABS [Concomitant]

REACTIONS (2)
  - Low birth weight baby [Unknown]
  - Exposure during breast feeding [Unknown]
